FAERS Safety Report 8464635-1 (Version None)
Quarter: 2012Q2

REPORT INFORMATION
  Report Type: 
  Country: None (occurrence: None)
  Receive Date: 20120323
  Receipt Date: 20111108
  Transmission Date: 20120825
  Serious: Yes (Hospitalization, Disabling)
  Sender: FDA-Public Use
  Company Number: 163-21880-11101149

PATIENT
  Age: 70 Year
  Sex: Male

DRUGS (9)
  1. AVELOX (MOXIFLOXACIN HYDROCHLORIDE) (400 MILLIGRAM, TABLETS) [Concomitant]
  2. ACETAMINOPHEN (PARACETAMOL) (500 MILLIGRAM, TABLETS) [Concomitant]
  3. ZOFRAN (ONDANSETRON HYDROCHLORIDE) (8 MILLIGRAM, UNKNOWN) [Concomitant]
  4. REVLIMID [Suspect]
     Indication: MYELODYSPLASTIC SYNDROME
     Dosage: 10 MG, DAYS 1-21 Q 28 DAYS, PO
     Route: 048
     Dates: start: 20110906, end: 20111004
  5. LORAZEPAM (LORAZEPAM) (1 MILLIGRAM, TABLETS) [Concomitant]
  6. LISINOPRIL [Concomitant]
  7. REQUIP (ROPINIROLE HYDROCHLORIDE) (0.25 MILLIGRAM, TABLETS) [Concomitant]
  8. MULTIPLE VITAMINS (MULTIPLE VITAMINS) (TABLETS) [Concomitant]
  9. VITAMIN C (ASCORBIC ACID) (500 MILLIGRAM, TABLETS) [Concomitant]

REACTIONS (1)
  - ACUTE MYELOID LEUKAEMIA [None]
